FAERS Safety Report 10280236 (Version 2)
Quarter: 2014Q3

REPORT INFORMATION
  Report Type: Other
  Country: IT (occurrence: IT)
  Receive Date: 20140707
  Receipt Date: 20140908
  Transmission Date: 20150326
  Serious: Yes (Other)
  Sender: FDA-Public Use
  Company Number: IT-ASTELLAS-2014EU009324

PATIENT
  Age: 69 Year
  Sex: Male

DRUGS (1)
  1. BETMIGA [Suspect]
     Active Substance: MIRABEGRON
     Indication: HYPERTONIC BLADDER
     Dosage: 50 MG, DAILY
     Route: 048

REACTIONS (2)
  - Tachycardia [Recovered/Resolved]
  - Arrhythmia [Recovered/Resolved]
